FAERS Safety Report 11303222 (Version 2)
Quarter: 2015Q3

REPORT INFORMATION
  Report Type: Report from Study
  Country: BR (occurrence: BR)
  Receive Date: 20150723
  Receipt Date: 20150823
  Transmission Date: 20151125
  Serious: Yes (Other)
  Sender: FDA-Public Use
  Company Number: PHHY2015BR086939

PATIENT
  Age: 82 Year
  Sex: Female
  Weight: 51 kg

DRUGS (1)
  1. ACLASTA [Suspect]
     Active Substance: ZOLEDRONIC ACID
     Indication: OSTEOPOROSIS
     Dosage: 5 MG, Q12MO (ONCE A YEAR)
     Route: 065
     Dates: start: 201307

REACTIONS (4)
  - Wrist fracture [Recovered/Resolved with Sequelae]
  - Nervousness [Unknown]
  - Hypertension [Recovered/Resolved with Sequelae]
  - Fall [Recovered/Resolved with Sequelae]

NARRATIVE: CASE EVENT DATE: 20150412
